FAERS Safety Report 26125695 (Version 2)
Quarter: 2025Q4

REPORT INFORMATION
  Report Type: Spontaneous
  Country: CN (occurrence: CN)
  Receive Date: 20251205
  Receipt Date: 20251208
  Transmission Date: 20260117
  Serious: Yes (Hospitalization, Other)
  Sender: MERCK SHARP & DOHME LLC
  Company Number: CN-009507513-2354531

PATIENT
  Age: 71 Year
  Sex: Male
  Weight: 58 kg

DRUGS (9)
  1. PEMBROLIZUMAB [Suspect]
     Active Substance: PEMBROLIZUMAB
     Indication: Hepatobiliary cancer
     Dosage: CYCLE 1
     Route: 041
     Dates: start: 20250722, end: 20250722
  2. PEMBROLIZUMAB [Suspect]
     Active Substance: PEMBROLIZUMAB
     Indication: Hepatobiliary cancer
     Dosage: CYCLE 2
     Route: 041
     Dates: start: 20250817, end: 20250817
  3. PEMBROLIZUMAB [Suspect]
     Active Substance: PEMBROLIZUMAB
     Indication: Hepatobiliary cancer
     Dosage: CYCLE 3
     Route: 041
     Dates: start: 20250908, end: 20250908
  4. GEMCITABINE HYDROCHLORIDE [Suspect]
     Active Substance: GEMCITABINE HYDROCHLORIDE
     Indication: Hepatobiliary cancer
     Dosage: TIME INTERVAL: CYCLICAL: 1.6 G, DAYS 1 AND 8 OF Q3W, CYCLE 1
     Route: 041
     Dates: start: 20250722, end: 20250729
  5. GEMCITABINE HYDROCHLORIDE [Suspect]
     Active Substance: GEMCITABINE HYDROCHLORIDE
     Indication: Hepatobiliary cancer
     Dosage: TIME INTERVAL: CYCLICAL: 1.3 G (DOSE REDUCED), DAYS 1 AND 8 OF Q3W, CYCLE 2
     Route: 041
     Dates: start: 20250817, end: 20250824
  6. GEMCITABINE HYDROCHLORIDE [Suspect]
     Active Substance: GEMCITABINE HYDROCHLORIDE
     Indication: Hepatobiliary cancer
     Dosage: TIME INTERVAL: CYCLICAL: 1.3 G (DOSE REDUCED), DAYS 1 AND 8 OF Q3W, CYCLE 3
     Route: 041
     Dates: start: 20250908, end: 20250915
  7. CISPLATIN [Suspect]
     Active Substance: CISPLATIN
     Indication: Hepatobiliary cancer
     Dosage: TIME INTERVAL: CYCLICAL: 40 MG, DAYS 1 AND 8 OF Q3W, CYCLE 1
     Route: 041
     Dates: start: 20250722, end: 20250729
  8. CISPLATIN [Suspect]
     Active Substance: CISPLATIN
     Indication: Hepatobiliary cancer
     Dosage: TIME INTERVAL: CYCLICAL: 35 MG (DOSE REDUCED), DAYS 1 AND 8 OF Q3W, CYCLE 2
     Route: 041
     Dates: start: 20250817, end: 20250824
  9. CISPLATIN [Suspect]
     Active Substance: CISPLATIN
     Indication: Hepatobiliary cancer
     Dosage: TIME INTERVAL: CYCLICAL: 35 MG (DOSE REDUCED), DAYS 1 AND 8 OF Q3W, CYCLE 3
     Route: 041
     Dates: start: 20250908, end: 20250915

REACTIONS (6)
  - Myelosuppression [Recovering/Resolving]
  - Melaena [Recovering/Resolving]
  - Rectal tenesmus [Unknown]
  - Liver injury [Unknown]
  - Drug intolerance [Unknown]
  - Frequent bowel movements [Unknown]

NARRATIVE: CASE EVENT DATE: 20250101
